FAERS Safety Report 15669339 (Version 1)
Quarter: 2018Q4

REPORT INFORMATION
  Report Type: Other
  Country: FR (occurrence: FR)
  Receive Date: 20181129
  Receipt Date: 20181129
  Transmission Date: 20190205
  Serious: Yes (Hospitalization)
  Sender: FDA-Public Use
  Company Number: FR-ASTELLAS-2018US050500

PATIENT
  Age: 2 Year
  Sex: Male
  Weight: 14 kg

DRUGS (4)
  1. CATAPRESSAN                        /00171101/ [Interacting]
     Active Substance: CLONIDINE
     Indication: WITHDRAWAL SYNDROME
     Dosage: UNK UNK, UNKNOWN FREQ.
     Route: 042
  2. FENTANYL                           /00174602/ [Interacting]
     Active Substance: FENTANYL
     Indication: SEDATIVE THERAPY
     Dosage: UNK UNK, UNKNOWN FREQ.
     Route: 042
  3. BACTRIM [Interacting]
     Active Substance: SULFAMETHOXAZOLE\TRIMETHOPRIM
     Indication: ANTIFUNGAL PROPHYLAXIS
     Route: 048
     Dates: end: 20181019
  4. MODIGRAF [Suspect]
     Active Substance: TACROLIMUS
     Indication: PROPHYLAXIS AGAINST TRANSPLANT REJECTION
     Dosage: 4.8 MG, ONCE DAILY
     Route: 048
     Dates: start: 20180926

REACTIONS (5)
  - Tremor [Recovered/Resolved]
  - Depressed level of consciousness [Recovered/Resolved]
  - Confusional state [Recovered/Resolved]
  - Psychomotor hyperactivity [Recovered/Resolved]
  - Drug interaction [Recovered/Resolved]

NARRATIVE: CASE EVENT DATE: 20181011
